FAERS Safety Report 8520356-8 (Version None)
Quarter: 2012Q3

REPORT INFORMATION
  Report Type: 
  Country: None (occurrence: None)
  Receive Date: 20120709
  Receipt Date: 20120625
  Transmission Date: 20120928
  Serious: Yes (Other)
  Sender: FDA-Public Use
  Company Number: 2011MA002529

PATIENT
  Sex: Female

DRUGS (4)
  1. LOVENOX [Concomitant]
  2. METOCLOPRAMIDE [Suspect]
     Indication: PRODUCT USED FOR UNKNOWN INDICATION
     Dosage: 10 MG, AC + HS, PO
     Route: 048
     Dates: start: 19990101, end: 20081201
  3. HYDROCODONE [Concomitant]
  4. WARFARIN SODIUM [Concomitant]

REACTIONS (9)
  - FAMILY STRESS [None]
  - TARDIVE DYSKINESIA [None]
  - DYSTONIA [None]
  - EXTRAPYRAMIDAL DISORDER [None]
  - ECONOMIC PROBLEM [None]
  - EMOTIONAL DISORDER [None]
  - TREMOR [None]
  - AKATHISIA [None]
  - DYSKINESIA [None]
